FAERS Safety Report 14908934 (Version 6)
Quarter: 2018Q2

REPORT INFORMATION
  Report Type: Spontaneous
  Country: JP (occurrence: JP)
  Receive Date: 20180517
  Receipt Date: 20180626
  Transmission Date: 20180711
  Serious: Yes (Other)
  Sender: FDA-Public Use
  Company Number: PHJP2018JP010631

PATIENT
  Age: 71 Year
  Sex: Female

DRUGS (3)
  1. VEGAMOX OPHTHALMIC SOLUTION 0.5% [Suspect]
     Active Substance: MOXIFLOXACIN HYDROCHLORIDE
     Dosage: 1 GTT, QID
     Route: 047
     Dates: start: 201801, end: 20180506
  2. PATANOL [Concomitant]
     Active Substance: OLOPATADINE HYDROCHLORIDE
     Indication: CONJUNCTIVITIS ALLERGIC
     Dosage: UNK
     Route: 047
     Dates: end: 20180506
  3. VEGAMOX OPHTHALMIC SOLUTION 0.5% [Suspect]
     Active Substance: MOXIFLOXACIN HYDROCHLORIDE
     Indication: DACRYOCYSTITIS
     Dosage: 1 GTT, QID
     Route: 047
     Dates: start: 20170405, end: 201709

REACTIONS (12)
  - Ocular hyperaemia [Unknown]
  - Corneal disorder [Recovered/Resolved]
  - Eye discharge [Unknown]
  - Corneal epithelium defect [Unknown]
  - Eye pain [Recovering/Resolving]
  - Eyelid disorder [Unknown]
  - Corneal erosion [Recovered/Resolved]
  - Eye irritation [Unknown]
  - Foreign body sensation in eyes [Recovering/Resolving]
  - Lacrimation increased [Recovering/Resolving]
  - Punctate keratitis [Recovered/Resolved]
  - Keratitis [Recovered/Resolved]

NARRATIVE: CASE EVENT DATE: 20180506
